FAERS Safety Report 8136157-9 (Version None)
Quarter: 2012Q1

REPORT INFORMATION
  Report Type: 
  Country: None (occurrence: None)
  Receive Date: 20120210
  Receipt Date: 20120201
  Transmission Date: 20120608
  Serious: Yes (Hospitalization)
  Sender: FDA-Public Use
  Company Number: 2012017969

PATIENT
  Age: 83 Year
  Sex: Female
  Weight: 64 kg

DRUGS (17)
  1. ATENOLOL [Concomitant]
  2. OXYCODONE HCL [Concomitant]
  3. FEMARA [Concomitant]
  4. GLUCOSAMINE SULFATE (GLUCOSAMINE SULFATE) [Concomitant]
  5. ATORVASTATIN [Concomitant]
  6. DALTEPARIN SODIUM [Suspect]
     Indication: THROMBOSIS
     Dosage: 12800 IU, SUBCUTANEOUS 1000 IU, SUBCUTANEOUS
     Route: 058
     Dates: start: 20120108, end: 20120118
  7. DALTEPARIN SODIUM [Suspect]
     Indication: THROMBOSIS
     Dosage: 12800 IU, SUBCUTANEOUS 1000 IU, SUBCUTANEOUS
     Route: 058
     Dates: start: 20110203, end: 20120102
  8. DALTEPARIN SODIUM [Suspect]
     Indication: THROMBOSIS
     Dosage: 12800 IU, SUBCUTANEOUS 1000 IU, SUBCUTANEOUS
     Route: 058
     Dates: start: 20110125, end: 20110202
  9. VITAMIN E [Concomitant]
  10. METFORMIN HCL [Concomitant]
  11. DILANTIN [Concomitant]
  12. ACETAMINOPHEN [Concomitant]
  13. IBUPROFEN [Concomitant]
  14. ACETAMINOPHEN [Concomitant]
  15. LECTOPAM (BROMAZEPAM) [Concomitant]
  16. MURO 128 (SODIUM CHLORIDE) [Concomitant]
  17. OMEPRAZOLE [Concomitant]

REACTIONS (4)
  - HAEMATOMA INFECTION [None]
  - CELLULITIS [None]
  - TRAUMATIC HAEMATOMA [None]
  - FALL [None]
